FAERS Safety Report 6872996-X (Version None)
Quarter: 2010Q3

REPORT INFORMATION
  Report Type: 
  Country: None (occurrence: None)
  Receive Date: 20100723
  Receipt Date: 20081117
  Transmission Date: 20110219
  Serious: No
  Sender: FDA-Public Use
  Company Number: US-PFIZER INC-2008097660

PATIENT
  Sex: Female
  Weight: 76.8 kg

DRUGS (4)
  1. CHANTIX [Suspect]
     Indication: SMOKING CESSATION THERAPY
     Dates: start: 20071101
  2. FELODIPINE [Concomitant]
  3. NEXIUM [Concomitant]
  4. PAROXETINE HCL [Concomitant]

REACTIONS (2)
  - INSOMNIA [None]
  - NAUSEA [None]
